FAERS Safety Report 15428822 (Version 2)
Quarter: 2019Q2

REPORT INFORMATION
  Report Type: Report from Study
  Country: BR (occurrence: BR)
  Receive Date: 20180926
  Receipt Date: 20190424
  Transmission Date: 20190711
  Serious: Yes (Other)
  Sender: FDA-Public Use
  Company Number: PHHY2017BR175871

PATIENT
  Sex: Female
  Weight: 76.4 kg

DRUGS (5)
  1. COSENTYX [Suspect]
     Active Substance: SECUKINUMAB
     Indication: ANKYLOSING SPONDYLITIS
     Dosage: 150 MG, QMO
     Route: 058
     Dates: start: 20160901
  2. COSENTYX [Suspect]
     Active Substance: SECUKINUMAB
     Dosage: 150 MG, UNK
     Route: 065
     Dates: start: 20161130, end: 201612
  3. COSENTYX [Suspect]
     Active Substance: SECUKINUMAB
     Dosage: 150 MG, UNK
     Route: 065
     Dates: start: 20180107
  4. COSENTYX [Suspect]
     Active Substance: SECUKINUMAB
     Dosage: UNK
     Route: 058
     Dates: start: 20180830
  5. COSENTYX [Suspect]
     Active Substance: SECUKINUMAB
     Dosage: UNK
     Route: 065
     Dates: start: 20190411

REACTIONS (41)
  - Weight decreased [Unknown]
  - Fatigue [Recovered/Resolved]
  - Vision blurred [Recovered/Resolved]
  - Hyperhidrosis [Recovered/Resolved]
  - Pain in extremity [Recovered/Resolved]
  - Back pain [Unknown]
  - Tonsillitis [Recovered/Resolved]
  - Infection [Unknown]
  - Heart rate increased [Not Recovered/Not Resolved]
  - Weight increased [Unknown]
  - Feeling abnormal [Unknown]
  - Anal fissure [Recovered/Resolved]
  - Inflammation [Unknown]
  - Pruritus generalised [Not Recovered/Not Resolved]
  - Fatigue [Not Recovered/Not Resolved]
  - Pharyngitis [Recovered/Resolved]
  - Haemorrhoids [Recovered/Resolved]
  - Asthenia [Recovered/Resolved]
  - Decreased immune responsiveness [Unknown]
  - Lactose intolerance [Not Recovered/Not Resolved]
  - Inappropriate schedule of product administration [Unknown]
  - Malaise [Recovered/Resolved]
  - Pain [Unknown]
  - Feeling hot [Recovered/Resolved]
  - Blood pressure increased [Unknown]
  - Exostosis [Unknown]
  - Arrhythmia [Not Recovered/Not Resolved]
  - Pyrexia [Recovered/Resolved]
  - Oropharyngeal pain [Unknown]
  - Headache [Recovered/Resolved]
  - Musculoskeletal pain [Recovered/Resolved]
  - Musculoskeletal stiffness [Recovered/Resolved]
  - Plantar fasciitis [Not Recovered/Not Resolved]
  - Asthma [Not Recovered/Not Resolved]
  - Arthralgia [Unknown]
  - Muscular weakness [Unknown]
  - Device failure [Unknown]
  - Injection site pain [Unknown]
  - Somnolence [Unknown]
  - Speech disorder [Unknown]
  - Stress [Unknown]
